FAERS Safety Report 5743542-9 (Version None)
Quarter: 2008Q2

REPORT INFORMATION
  Report Type: 
  Country: None (occurrence: None)
  Receive Date: 20080519
  Receipt Date: 20080519
  Transmission Date: 20081010
  Serious: Yes (Other)
  Sender: FDA-Public Use
  Company Number: None

PATIENT
  Age: 57 Year
  Sex: Female
  Weight: 98.8842 kg

DRUGS (4)
  1. LEVAQUIN [Suspect]
     Indication: ARTHRITIS
     Dosage: 1 FOR 10 DAYS DAILY PO, 3 BAGS FOR 3.5.DAYS DAILY IV
     Dates: start: 20080421, end: 20080423
  2. LEVAQUIN [Suspect]
     Indication: GOUT
     Dosage: 1 FOR 10 DAYS DAILY PO, 3 BAGS FOR 3.5.DAYS DAILY IV
     Dates: start: 20080421, end: 20080423
  3. LEVAQUIN [Suspect]
     Indication: ARTHRITIS
     Dosage: 1 FOR 10 DAYS DAILY PO, 3 BAGS FOR 3.5.DAYS DAILY IV
     Dates: start: 20080424, end: 20080502
  4. LEVAQUIN [Suspect]
     Indication: GOUT
     Dosage: 1 FOR 10 DAYS DAILY PO, 3 BAGS FOR 3.5.DAYS DAILY IV
     Dates: start: 20080424, end: 20080502

REACTIONS (8)
  - DIABETIC FOOT INFECTION [None]
  - DRY SKIN [None]
  - FUNGAL INFECTION [None]
  - PARAESTHESIA [None]
  - RASH [None]
  - RASH ERYTHEMATOUS [None]
  - SKIN BURNING SENSATION [None]
  - SKIN EXFOLIATION [None]
